FAERS Safety Report 15632599 (Version 2)
Quarter: 2018Q4

REPORT INFORMATION
  Report Type: Report from Study
  Country: DE (occurrence: DE)
  Receive Date: 20181119
  Receipt Date: 20181129
  Transmission Date: 20190205
  Serious: Yes (Hospitalization)
  Sender: FDA-Public Use
  Company Number: DE-CELGENEUS-DEU-20181004318

PATIENT
  Age: 62 Year
  Sex: Male
  Weight: 71 kg

DRUGS (11)
  1. GRANOCYTE [Suspect]
     Active Substance: LENOGRASTIM
     Indication: HAEMATOPOIETIC STEM CELL MOBILISATION
     Route: 065
     Dates: start: 20161214, end: 20161220
  2. LYRICA [Concomitant]
     Active Substance: PREGABALIN
     Indication: POLYNEUROPATHY
     Route: 048
     Dates: start: 20170703, end: 20181107
  3. REVLIMID [Suspect]
     Active Substance: LENALIDOMIDE
     Indication: PLASMA CELL MYELOMA
     Route: 048
     Dates: start: 20160919, end: 20181008
  4. REVLIMID [Suspect]
     Active Substance: LENALIDOMIDE
     Route: 048
     Dates: end: 20181106
  5. BORTEZOMIB. [Suspect]
     Active Substance: BORTEZOMIB
     Indication: PLASMA CELL MYELOMA
     Route: 058
     Dates: start: 20160919, end: 20170612
  6. CYCLOPHOSPHAMIDE. [Suspect]
     Active Substance: CYCLOPHOSPHAMIDE
     Indication: PLASMA CELL MYELOMA
     Route: 065
     Dates: start: 20161214
  7. DEXAMETHASONE. [Suspect]
     Active Substance: DEXAMETHASONE
     Route: 065
     Dates: start: 20161214
  8. ELOTUZUMAB. [Suspect]
     Active Substance: ELOTUZUMAB
     Indication: PLASMA CELL MYELOMA
     Route: 041
     Dates: start: 20170508
  9. DEXAMETHASONE. [Suspect]
     Active Substance: DEXAMETHASONE
     Indication: PLASMA CELL MYELOMA
     Route: 048
     Dates: start: 20160919, end: 20181022
  10. ADRIAMYCIN [Suspect]
     Active Substance: DOXORUBICIN HYDROCHLORIDE
     Indication: PLASMA CELL MYELOMA
     Route: 065
     Dates: start: 20161214
  11. MELPHALAN. [Suspect]
     Active Substance: MELPHALAN
     Indication: HAEMATOPOIETIC STEM CELL MOBILISATION
     Dosage: HIGH DOSE MELPHALAN
     Route: 065
     Dates: start: 20170127

REACTIONS (2)
  - Lung infection [Recovered/Resolved]
  - Febrile infection [Recovered/Resolved]

NARRATIVE: CASE EVENT DATE: 20181008
